FAERS Safety Report 10058283 (Version 2)
Quarter: 2014Q2

REPORT INFORMATION
  Report Type: Spontaneous
  Country: US (occurrence: None)
  Receive Date: 20140402
  Receipt Date: 20140422
  Transmission Date: 20141212
  Serious: Yes (Life-Threatening, Hospitalization, Other)
  Sender: FDA-Public Use
  Company Number: ADR-2014-00335

PATIENT
  Age: 78 Year
  Sex: Female

DRUGS (15)
  1. BACLOFEN INTRATHECAL [Suspect]
     Indication: PAIN
     Dosage: 573 MCG/DAY
  2. BUPIVACAINE INTRATHECAL [Suspect]
     Dosage: 2.2 MG/DAY
  3. DILAUDID [Suspect]
     Dosage: 2.15 MG/DAY
  4. TOPROL XL [Suspect]
  5. HYDROXYZINE PAMOATE [Suspect]
     Dosage: ONE CAPSULE THREE TIMES/DAY AS NEEDED FOR NAUSEA
     Route: 048
  6. QUETIAPINE [Suspect]
     Dosage: 25MG DAILY AT BEDTIME
     Route: 048
  7. POTASSIUM-MULTIVITAMIN [Suspect]
     Route: 048
  8. GABAPENTIN 100MG CAPSULES [Suspect]
     Dosage: 100 MG; ORAL TWO CAPSULES THREE TIMES/DAY
     Route: 048
  9. METHOCARBAMOL [Suspect]
     Route: 048
  10. CLONAZEPAM 0.5MG [Suspect]
     Route: 048
  11. CALCIUM CHOLECALCIFEROL [Suspect]
     Route: 048
  12. CARTEOLOL [Suspect]
  13. BRIMONIDINE [Suspect]
     Dosage: OPTH DROP BOTH EYES TWICE/DAY
  14. FUROSEMIDE 20MG [Suspect]
  15. FISH OIL [Suspect]
     Route: 048

REACTIONS (9)
  - Cardiac arrest [None]
  - Procedural hypotension [None]
  - Unresponsive to stimuli [None]
  - Drug ineffective [None]
  - Cardio-respiratory arrest [None]
  - Convulsion [None]
  - Pulseless electrical activity [None]
  - Metabolic encephalopathy [None]
  - Acute respiratory failure [None]
